FAERS Safety Report 25689156 (Version 1)
Quarter: 2025Q3

REPORT INFORMATION
  Report Type: Spontaneous
  Country: CA (occurrence: CA)
  Receive Date: 20250818
  Receipt Date: 20250818
  Transmission Date: 20251020
  Serious: Yes (Life-Threatening, Hospitalization, Disabling, Other)
  Sender: DAIICHI
  Company Number: CA-ASTRAZENECA-202508CAN008612CA

PATIENT
  Age: 59 Year
  Sex: Female

DRUGS (1)
  1. TRASTUZUMAB DERUXTECAN [Suspect]
     Active Substance: TRASTUZUMAB DERUXTECAN
     Indication: Product used for unknown indication
     Route: 065

REACTIONS (4)
  - Interstitial lung disease [Recovering/Resolving]
  - Oxygen therapy [Recovering/Resolving]
  - Pneumomediastinum [Recovering/Resolving]
  - Pneumonitis [Recovering/Resolving]
